FAERS Safety Report 17126498 (Version 1)
Quarter: 2019Q4

REPORT INFORMATION
  Report Type: Spontaneous
  Country: US (occurrence: US)
  Receive Date: 20191209
  Receipt Date: 20191209
  Transmission Date: 20200122
  Serious: No
  Sender: FDA-Public Use
  Company Number: US-UCBSA-2017014208

PATIENT
  Sex: Female
  Weight: 69.39 kg

DRUGS (3)
  1. KEPPRA [Suspect]
     Active Substance: LEVETIRACETAM
     Indication: SEIZURE PROPHYLAXIS
     Dosage: 500 MG, 1 TABLET EVERY 12 HOURS
     Dates: start: 2015
  2. KEPPRA [Suspect]
     Active Substance: LEVETIRACETAM
     Indication: OFF LABEL USE
  3. LEXAPRO [Concomitant]
     Active Substance: ESCITALOPRAM OXALATE
     Indication: DEPRESSION
     Dosage: 10 MG, ONCE DAILY (QD)

REACTIONS (3)
  - Weight gain poor [Unknown]
  - Affective disorder [Unknown]
  - Off label use [Unknown]

NARRATIVE: CASE EVENT DATE: 2015
